FAERS Safety Report 7535944-5 (Version None)
Quarter: 2011Q2

REPORT INFORMATION
  Report Type: 
  Country: None (occurrence: None)
  Receive Date: 20110607
  Receipt Date: 20110607
  Transmission Date: 20111010
  Serious: Yes (Other)
  Sender: FDA-Public Use
  Company Number: None

PATIENT
  Age: 56 Year
  Sex: Female

DRUGS (1)
  1. BETAMETHASONE SODIUM PHOSPHATE AND BETAMETHASONE ACETATE [Suspect]
     Dosage: EPIDURAL
     Route: 008
     Dates: start: 20110414, end: 20110414

REACTIONS (4)
  - SWELLING [None]
  - MUSCLE SPASMS [None]
  - BACK PAIN [None]
  - ERYTHEMA [None]
